FAERS Safety Report 8862423 (Version 4)
Quarter: 2013Q1

REPORT INFORMATION
  Report Type: Spontaneous
  Country: GB (occurrence: GB)
  Receive Date: 20121026
  Receipt Date: 20130318
  Transmission Date: 20140127
  Serious: Yes (Hospitalization, Other)
  Sender: FDA-Public Use
  Company Number: PHFR2012GB005591

PATIENT
  Sex: Male

DRUGS (1)
  1. CLOZARIL [Suspect]
     Indication: SCHIZOPHRENIA
     Route: 048
     Dates: start: 20010427, end: 20121016

REACTIONS (4)
  - Cardiac arrest [Recovered/Resolved]
  - Intestinal ulcer perforation [Recovering/Resolving]
  - Cardiac failure [Unknown]
  - Duodenal ulcer [Unknown]
